FAERS Safety Report 11130998 (Version 2)
Quarter: 2015Q4

REPORT INFORMATION
  Report Type: Report from Study
  Country: US (occurrence: US)
  Receive Date: 20150522
  Receipt Date: 20151112
  Transmission Date: 20160304
  Serious: Yes (Hospitalization)
  Sender: FDA-Public Use
  Company Number: US-BIOGENIDEC-2015BI067696

PATIENT
  Sex: Female

DRUGS (13)
  1. AMLODIPINE BESYLATE. [Concomitant]
     Active Substance: AMLODIPINE BESYLATE
     Route: 048
  2. POTASSIUM CHLORIDE. [Concomitant]
     Active Substance: POTASSIUM CHLORIDE
     Route: 048
  3. MELOXICAM. [Concomitant]
     Active Substance: MELOXICAM
  4. POTASSIUM BITARTRATE. [Concomitant]
     Active Substance: POTASSIUM BITARTRATE
  5. CARVEDILOL. [Concomitant]
     Active Substance: CARVEDILOL
     Route: 048
  6. VITAMIN D3 [Concomitant]
     Active Substance: CHOLECALCIFEROL
  7. AMITRIPTYLINE HCI [Concomitant]
  8. CYCLOBENZAPRINE HCI [Concomitant]
  9. LOSARTIN POTASSIUM [Concomitant]
     Route: 048
  10. VITAMIN C [Concomitant]
     Active Substance: ASCORBIC ACID
  11. CYMBALTA [Concomitant]
     Active Substance: DULOXETINE HYDROCHLORIDE
     Route: 048
  12. TECFIDERA [Suspect]
     Active Substance: DIMETHYL FUMARATE
     Indication: MULTIPLE SCLEROSIS
     Route: 048
     Dates: start: 2013, end: 2015
  13. CYMBALTA [Concomitant]
     Active Substance: DULOXETINE HYDROCHLORIDE
     Route: 048

REACTIONS (1)
  - Benign neoplasm of spinal cord [Unknown]
